FAERS Safety Report 24690329 (Version 2)
Quarter: 2025Q1

REPORT INFORMATION
  Report Type: Spontaneous
  Country: US (occurrence: US)
  Receive Date: 20241203
  Receipt Date: 20250307
  Transmission Date: 20250408
  Serious: No
  Sender: SANOFI AVENTIS
  Company Number: US-SA-2024SA350878

PATIENT
  Age: 37 Year
  Sex: Female
  Weight: 89.36 kg

DRUGS (1)
  1. REZUROCK [Suspect]
     Active Substance: BELUMOSUDIL
     Indication: Chronic graft versus host disease
     Dosage: 200 MG, QD
     Route: 048
     Dates: start: 20240405

REACTIONS (2)
  - Palpitations [Unknown]
  - Illness [Unknown]

NARRATIVE: CASE EVENT DATE: 20241101
